FAERS Safety Report 10037572 (Version 1)
Quarter: 2014Q1

REPORT INFORMATION
  Report Type: Spontaneous
  Country: MX (occurrence: MX)
  Receive Date: 20140326
  Receipt Date: 20140326
  Transmission Date: 20141002
  Serious: Yes (Other)
  Sender: FDA-Public Use
  Company Number: MX-UCBSA-115118

PATIENT
  Age: 50 Year
  Sex: 0

DRUGS (3)
  1. VIMPAT [Suspect]
     Indication: CONVULSION
     Dosage: TOTAL DAILY DOSE: 400 MG
  2. KEPPRA [Concomitant]
  3. VALPROIC ACID [Concomitant]

REACTIONS (1)
  - Syncope [Not Recovered/Not Resolved]
